FAERS Safety Report 8808091 (Version 2)
Quarter: 2013Q2

REPORT INFORMATION
  Report Type: Spontaneous
  Country: US (occurrence: US)
  Receive Date: 20120925
  Receipt Date: 20130521
  Transmission Date: 20140414
  Serious: Yes (Death, Hospitalization, Other)
  Sender: FDA-Public Use
  Company Number: US-ROCHE-1123048

PATIENT
  Sex: Female

DRUGS (3)
  1. AVASTIN [Suspect]
     Indication: COLON CANCER
     Route: 065
  2. AVASTIN [Suspect]
     Indication: METASTASES TO PERITONEUM
  3. AVASTIN [Suspect]
     Indication: RETROPERITONEAL CANCER

REACTIONS (4)
  - Death [Fatal]
  - Dyspnoea [Unknown]
  - Disease progression [Unknown]
  - Thrombosis [Unknown]
